FAERS Safety Report 18268987 (Version 1)
Quarter: 2020Q3

REPORT INFORMATION
  Report Type: Report from Study
  Country: US (occurrence: US)
  Receive Date: 20200915
  Receipt Date: 20200915
  Transmission Date: 20201103
  Serious: Yes (Hospitalization)
  Sender: FDA-Public Use
  Company Number: US-EISAI MEDICAL RESEARCH-EC-2020-077015

PATIENT
  Age: 62 Year
  Sex: Female
  Weight: 66 kg

DRUGS (4)
  1. LENVIMA [Suspect]
     Active Substance: LENVATINIB
     Indication: RENAL CANCER
     Route: 048
     Dates: start: 202006, end: 20200805
  2. LISINOPRIL. [Concomitant]
     Active Substance: LISINOPRIL
  3. EVEROLIMUS. [Concomitant]
     Active Substance: EVEROLIMUS
  4. LENVIMA [Suspect]
     Active Substance: LENVATINIB
     Route: 048
     Dates: start: 20200806

REACTIONS (5)
  - Weight decreased [Not Recovered/Not Resolved]
  - Tinnitus [Unknown]
  - Blood pressure increased [Recovered/Resolved]
  - Palpitations [Unknown]
  - Cough [Unknown]

NARRATIVE: CASE EVENT DATE: 2020
